FAERS Safety Report 9165848 (Version 1)
Quarter: 2013Q1

REPORT INFORMATION
  Report Type: Spontaneous
  Country: US (occurrence: None)
  Receive Date: 20130228
  Receipt Date: 20130228
  Transmission Date: 20140127
  Serious: Yes (Other)
  Sender: FDA-Public Use
  Company Number: 20130052

PATIENT
  Sex: Female

DRUGS (1)
  1. CYANOCOBALAMIN INJECTION, USP (0031-25) 1000 UG/ML [Suspect]
     Dates: start: 201208, end: 20130204

REACTIONS (6)
  - Pruritus [None]
  - Local swelling [None]
  - Tinnitus [None]
  - Hearing impaired [None]
  - Urine output increased [None]
  - Fatigue [None]
